FAERS Safety Report 10142545 (Version 1)
Quarter: 2014Q2

REPORT INFORMATION
  Report Type: Spontaneous
  Country: FI (occurrence: FI)
  Receive Date: 20140430
  Receipt Date: 20140430
  Transmission Date: 20141212
  Serious: Yes (Life-Threatening, Hospitalization)
  Sender: FDA-Public Use
  Company Number: FI-BRISTOL-MYERS SQUIBB COMPANY-20681623

PATIENT
  Age: 49 Year
  Sex: Female
  Weight: 99.6 kg

DRUGS (4)
  1. ABILIFY TABS 15 MG [Suspect]
     Indication: SCHIZOPHRENIA
     Route: 048
     Dates: start: 20140222, end: 20140228
  2. KETIPINOR [Concomitant]
     Indication: SCHIZOPHRENIA
     Dosage: TABS
     Route: 048
     Dates: start: 20140222, end: 20140228
  3. BISOPROLOL [Concomitant]
     Indication: ARRHYTHMIA
     Dosage: TABS
     Route: 048
     Dates: start: 20050205
  4. PERATSIN [Concomitant]
     Indication: SCHIZOPHRENIA
     Dosage: TABS
     Route: 048
     Dates: start: 19850420

REACTIONS (6)
  - Insomnia [Unknown]
  - Tremor [Unknown]
  - Constipation [Unknown]
  - Nausea [Unknown]
  - Blood pressure increased [Unknown]
  - Arrhythmia [Unknown]
